FAERS Safety Report 26085456 (Version 1)
Quarter: 2025Q4

REPORT INFORMATION
  Report Type: Spontaneous
  Country: US (occurrence: US)
  Receive Date: 20251125
  Receipt Date: 20251125
  Transmission Date: 20260117
  Serious: No
  Sender: TEVA
  Company Number: US-TEVA-VS-3393799

PATIENT
  Age: 63 Year
  Sex: Male

DRUGS (5)
  1. FAMOTIDINE [Suspect]
     Active Substance: FAMOTIDINE
     Indication: Gastrooesophageal reflux disease
     Dosage: TWO 20 MG TABLETS PER DAY
     Route: 065
     Dates: start: 20251025, end: 20251112
  2. FAMOTIDINE [Suspect]
     Active Substance: FAMOTIDINE
     Indication: Gastrooesophageal reflux disease
     Route: 065
     Dates: start: 20251113
  3. VANCOMYCIN [Suspect]
     Active Substance: VANCOMYCIN
     Indication: Pneumonia
     Route: 065
  4. DOXYCYCLINE [Suspect]
     Active Substance: DOXYCYCLINE
     Indication: Pneumonia
     Route: 065
  5. VITAMIN D [Concomitant]
     Active Substance: VITAMIN D NOS
     Indication: Product used for unknown indication

REACTIONS (6)
  - Occipital neuralgia [Recovering/Resolving]
  - Hangover [Recovering/Resolving]
  - Stenosis [Recovering/Resolving]
  - Feeling jittery [Recovering/Resolving]
  - Allergy to chemicals [Not Recovered/Not Resolved]
  - Discomfort [Recovering/Resolving]

NARRATIVE: CASE EVENT DATE: 20250101
